FAERS Safety Report 10220334 (Version 2)
Quarter: 2014Q3

REPORT INFORMATION
  Report Type: Spontaneous
  Country: TR (occurrence: TR)
  Receive Date: 20140606
  Receipt Date: 20140818
  Transmission Date: 20150326
  Serious: Yes (Other)
  Sender: FDA-Public Use
  Company Number: TR-AMGEN INC.-TURSP2014042299

PATIENT
  Age: 49 Year
  Sex: Female

DRUGS (1)
  1. ENBREL [Suspect]
     Active Substance: ETANERCEPT
     Indication: RHEUMATOID ARTHRITIS
     Dosage: 25 MG, 2X/WEEK
     Route: 058
     Dates: start: 20140213

REACTIONS (7)
  - Asthenia [Not Recovered/Not Resolved]
  - Pain [Recovered/Resolved]
  - Gastrointestinal disorder [Unknown]
  - Injection site pain [Not Recovered/Not Resolved]
  - Cholelithiasis [Unknown]
  - Joint stiffness [Recovered/Resolved]
  - Local swelling [Not Recovered/Not Resolved]

NARRATIVE: CASE EVENT DATE: 201405
